FAERS Safety Report 9342487 (Version 1)
Quarter: 2013Q2

REPORT INFORMATION
  Report Type: Report from Study
  Country: US (occurrence: US)
  Receive Date: 20130611
  Receipt Date: 20130611
  Transmission Date: 20140414
  Serious: Yes (Other)
  Sender: FDA-Public Use
  Company Number: US-JNJFOC-20130600988

PATIENT
  Sex: Female
  Weight: 96.16 kg

DRUGS (8)
  1. REMICADE [Suspect]
     Indication: BURSITIS
     Route: 042
     Dates: start: 2002
  2. REMICADE [Suspect]
     Indication: OSTEOPENIA
     Route: 042
     Dates: start: 2002
  3. REMICADE [Suspect]
     Indication: RHEUMATOID ARTHRITIS
     Route: 042
     Dates: start: 2002
  4. RECLAST [Concomitant]
     Indication: OSTEOPENIA
     Route: 065
     Dates: start: 1995, end: 201302
  5. LEVOTHYROXINE [Concomitant]
     Indication: HYPERTHYROIDISM
     Route: 048
     Dates: start: 2000
  6. METHOTREXATE [Concomitant]
     Indication: ARTHRITIS
     Route: 048
  7. METHOTREXATE [Concomitant]
     Indication: ARTHRITIS
     Route: 048
     Dates: start: 2002
  8. HCTZ/TRIAMTERENE [Concomitant]
     Indication: DIURETIC THERAPY
     Route: 048
     Dates: start: 2006

REACTIONS (4)
  - Mass [Recovered/Resolved]
  - Cataract [Not Recovered/Not Resolved]
  - Vertigo [Unknown]
  - Fluid retention [Unknown]
